FAERS Safety Report 5757442-1 (Version None)
Quarter: 2008Q2

REPORT INFORMATION
  Report Type: 
  Country: None (occurrence: None)
  Receive Date: 20080603
  Receipt Date: 20080530
  Transmission Date: 20081010
  Serious: Yes (Hospitalization)
  Sender: FDA-Public Use
  Company Number: US-BOEHRINGER INGELHEIM GMBH, GERMANY-2008-BP-06574BP

PATIENT
  Age: 50 Year
  Sex: Male
  Weight: 88 kg

DRUGS (7)
  1. APTIVUS/RITONAVIR CAPSULES [Suspect]
     Indication: HIV INFECTION
     Dates: start: 20050701, end: 20080201
  2. FUZEON [Concomitant]
     Dates: start: 20020201
  3. NORVIR [Concomitant]
     Dates: start: 20050701
  4. SIMVASTATIN [Concomitant]
  5. ATENOLOL [Concomitant]
  6. TRICOR [Concomitant]
  7. HYDROCHLOROTHIAZIDE [Concomitant]

REACTIONS (1)
  - CEREBRAL HAEMATOMA [None]
